FAERS Safety Report 18378464 (Version 2)
Quarter: 2020Q4

REPORT INFORMATION
  Report Type: Spontaneous
  Country: BR (occurrence: BR)
  Receive Date: 20201013
  Receipt Date: 20201019
  Transmission Date: 20210114
  Serious: Yes (Other)
  Sender: FDA-Public Use
  Company Number: BR-NOVOPROD-758982

PATIENT
  Sex: Male
  Weight: 70 kg

DRUGS (2)
  1. FIASP [Suspect]
     Active Substance: INSULIN ASPART
     Dosage: STARTED USING A NEW PEN AS TREATMENT
     Route: 065
  2. FIASP [Suspect]
     Active Substance: INSULIN ASPART
     Indication: TYPE 1 DIABETES MELLITUS
     Dosage: ACCORDING TO CARBOHYDRATE COUNT.
     Route: 065
     Dates: start: 202007

REACTIONS (4)
  - Drug ineffective [Recovered/Resolved]
  - Preictal state [Recovered/Resolved]
  - Product quality issue [Unknown]
  - Blood glucose increased [Recovered/Resolved]
